FAERS Safety Report 20738645 (Version 1)
Quarter: 2022Q2

REPORT INFORMATION
  Report Type: Spontaneous
  Country: US (occurrence: US)
  Receive Date: 20220422
  Receipt Date: 20220422
  Transmission Date: 20220720
  Serious: Yes (Other)
  Sender: FDA-Public Use
  Company Number: US-drreddys-LIT/USA/22/0149149

PATIENT
  Age: 61 Year
  Sex: Female

DRUGS (5)
  1. GEMCITABINE [Suspect]
     Active Substance: GEMCITABINE
     Indication: Inflammatory myofibroblastic tumour
  2. DOCETAXEL [Suspect]
     Active Substance: DOCETAXEL
     Indication: Inflammatory myofibroblastic tumour
  3. DOXORUBICIN HYDROCHLORIDE [Suspect]
     Active Substance: DOXORUBICIN HYDROCHLORIDE
     Indication: Inflammatory myofibroblastic tumour
  4. CRIZOTINIB [Suspect]
     Active Substance: CRIZOTINIB
     Indication: Inflammatory myofibroblastic tumour
  5. CERITINIB [Suspect]
     Active Substance: CERITINIB
     Indication: Inflammatory myofibroblastic tumour

REACTIONS (2)
  - Disease progression [Not Recovered/Not Resolved]
  - Drug ineffective [Unknown]
